FAERS Safety Report 4292259-9 (Version None)
Quarter: 2004Q1

REPORT INFORMATION
  Report Type: 
  Country: None (occurrence: None)
  Receive Date: 20040211
  Receipt Date: 20040130
  Transmission Date: 20041129
  Serious: Yes (Life-Threatening, Hospitalization, Disabling)
  Sender: FDA-Public Use
  Company Number: GB-GLAXOSMITHKLINE-B0321714A

PATIENT
  Age: 48 Year
  Sex: Male
  Weight: 70 kg

DRUGS (3)
  1. SUXAMETHONIUM [Suspect]
     Indication: INDUCTION OF ANAESTHESIA
     Dosage: 100MG UNKNOWN
     Route: 042
     Dates: start: 20031118
  2. PROPOFOL [Concomitant]
     Indication: INDUCTION OF ANAESTHESIA
     Dosage: 200MG PER DAY
     Route: 042
     Dates: start: 20031118
  3. FENTANYL [Concomitant]
     Indication: INDUCTION OF ANAESTHESIA
     Dosage: 100MG PER DAY
     Route: 042
     Dates: start: 20031118

REACTIONS (3)
  - BRONCHOSPASM [None]
  - CARDIAC ARREST [None]
  - RASH [None]
